FAERS Safety Report 7932050-2 (Version None)
Quarter: 2011Q4

REPORT INFORMATION
  Report Type: 
  Country: None (occurrence: None)
  Receive Date: 20111121
  Receipt Date: 20110822
  Transmission Date: 20120403
  Serious: No
  Sender: FDA-Public Use
  Company Number: US-BAYER-2011-083342

PATIENT

DRUGS (2)
  1. ALEVE (CAPLET) [Suspect]
     Indication: HANGOVER
     Dosage: 4 DF, UNK
  2. ASPIRIN [Suspect]
     Indication: HANGOVER
     Dosage: 8 DF, UNK

REACTIONS (1)
  - HANGOVER [None]
